FAERS Safety Report 8326952-5 (Version None)
Quarter: 2012Q2

REPORT INFORMATION
  Report Type: 
  Country: None (occurrence: None)
  Receive Date: 20120501
  Receipt Date: 20120423
  Transmission Date: 20120825
  Serious: Yes (Other)
  Sender: FDA-Public Use
  Company Number: JP-MILLENNIUM PHARMACEUTICALS, INC.-2011-01509

PATIENT

DRUGS (2)
  1. VELCADE [Suspect]
     Indication: MULTIPLE MYELOMA
     Dosage: 1.3 MG/M2, CYCLIC
  2. DEXAMETHASONE [Suspect]
     Indication: MULTIPLE MYELOMA
     Dosage: 20 MG, CYCLIC

REACTIONS (4)
  - ORGANISING PNEUMONIA [None]
  - PNEUMOCYSTIS JIROVECI PNEUMONIA [None]
  - ACUTE GRAFT VERSUS HOST DISEASE [None]
  - NEUROPATHY PERIPHERAL [None]
